FAERS Safety Report 12728545 (Version 1)
Quarter: 2016Q3

REPORT INFORMATION
  Report Type: Spontaneous
  Country: US (occurrence: US)
  Receive Date: 20160907
  Receipt Date: 20160907
  Transmission Date: 20161109
  Serious: No
  Sender: FDA-Public Use
  Company Number: None

PATIENT
  Age: 53 Year
  Sex: Female
  Weight: 63 kg

DRUGS (1)
  1. ICY HOT [Suspect]
     Active Substance: MENTHOL\METHYL SALICYLATE
     Indication: MYALGIA
     Dosage: OTHER STRENGTH:;OTHER DOSE:APPLICATION;OTHER FREQUENCY:;OTHER ROUTE:
     Route: 061
     Dates: start: 20160906, end: 20160906

REACTIONS (4)
  - Application site vesicles [None]
  - Application site discolouration [None]
  - Application site burn [None]
  - Application site exfoliation [None]

NARRATIVE: CASE EVENT DATE: 20160906
